FAERS Safety Report 6505791-1 (Version None)
Quarter: 2009Q4

REPORT INFORMATION
  Report Type: 
  Country: None (occurrence: None)
  Receive Date: 20091218
  Receipt Date: 20091209
  Transmission Date: 20100525
  Serious: Yes (Other)
  Sender: FDA-Public Use
  Company Number: SE-AMGEN-UK379092

PATIENT
  Sex: Male

DRUGS (2)
  1. NPLATE [Suspect]
  2. INFLUENZA VIRUS VACCINE [Concomitant]

REACTIONS (3)
  - PLATELET COUNT DECREASED [None]
  - THERAPEUTIC RESPONSE DECREASED [None]
  - THROMBOCYTOSIS [None]
